FAERS Safety Report 4267218-2 (Version None)
Quarter: 2004Q1

REPORT INFORMATION
  Report Type: 
  Country: None (occurrence: None)
  Receive Date: 20040107
  Receipt Date: 20031223
  Transmission Date: 20041129
  Serious: Yes (Hospitalization)
  Sender: FDA-Public Use
  Company Number: 2003EU007173

PATIENT
  Age: 59 Year
  Sex: Female

DRUGS (1)
  1. FK506 (TACROLIMUS CAPSULES) [Suspect]
     Indication: LIVER TRANSPLANT
     Dosage: SEE IMAGE
     Route: 048
     Dates: start: 20030430

REACTIONS (3)
  - CHOLANGIOLITIS [None]
  - STENT OCCLUSION [None]
  - STREPTOCOCCAL SEPSIS [None]
